FAERS Safety Report 9161230 (Version 1)
Quarter: 2013Q1

REPORT INFORMATION
  Report Type: Spontaneous
  Country: DE (occurrence: DE)
  Receive Date: 20130313
  Receipt Date: 20130313
  Transmission Date: 20140127
  Serious: Yes (Other)
  Sender: FDA-Public Use
  Company Number: DE-B.I. PHARMACEUTICALS,INC./RIDGEFIELD-2013-DE-00675DE

PATIENT
  Sex: Male
  Weight: 64 kg

DRUGS (8)
  1. PRADAXA [Suspect]
     Indication: ATRIAL FIBRILLATION
     Dosage: 220 NR
     Dates: end: 20130303
  2. METO SUCC [Concomitant]
     Dosage: 95 NR
  3. PANTOPRAZOL [Concomitant]
  4. CARBAMACEPIN [Concomitant]
  5. ATORVASTATIN [Concomitant]
  6. RANEXA [Concomitant]
  7. LYRICA [Concomitant]
  8. TRAMAL LONG [Concomitant]

REACTIONS (3)
  - Ischaemic stroke [Not Recovered/Not Resolved]
  - Flatulence [Unknown]
  - Flatulence [Unknown]
